FAERS Safety Report 10219068 (Version 4)
Quarter: 2015Q2

REPORT INFORMATION
  Report Type: Report from Study
  Country: JP (occurrence: JP)
  Receive Date: 20140605
  Receipt Date: 20150619
  Transmission Date: 20150821
  Serious: Yes (Death, Life-Threatening, Hospitalization)
  Sender: FDA-Public Use
  Company Number: JP-SA-THYM-1003819

PATIENT
  Age: 8 Year
  Sex: Male
  Weight: 32.2 kg

DRUGS (34)
  1. SOLDEM 1 [Concomitant]
     Active Substance: DEXTROSE\SODIUM CHLORIDE\SODIUM LACTATE
     Dates: start: 20130403, end: 20130422
  2. CELLCEPT [Concomitant]
     Active Substance: MYCOPHENOLATE MOFETIL\MYCOPHENOLATE MOFETIL HYDROCHLORIDE
     Indication: PROPHYLAXIS AGAINST GRAFT VERSUS HOST DISEASE
     Dates: start: 20130327, end: 20130408
  3. MINERAMIC [Concomitant]
     Indication: DECREASED APPETITE
     Dates: start: 20130406, end: 20130415
  4. PROGRAF [Suspect]
     Active Substance: TACROLIMUS\TACROLIMUS ANHYDROUS
     Indication: PROPHYLAXIS AGAINST GRAFT VERSUS HOST DISEASE
     Route: 065
     Dates: start: 20130409, end: 20130425
  5. ATARAX-P [Concomitant]
     Active Substance: HYDROXYZINE HYDROCHLORIDE
     Indication: ALLERGY PROPHYLAXIS
     Dates: start: 20130403, end: 20130422
  6. FAMOTIDINE. [Concomitant]
     Active Substance: FAMOTIDINE
     Indication: PROPHYLAXIS AGAINST GASTROINTESTINAL ULCER
     Dates: start: 20130406, end: 20130425
  7. URSO [Concomitant]
     Active Substance: URSODIOL
     Indication: PROPHYLAXIS
     Dates: end: 20130425
  8. FLUCONAZOLE. [Concomitant]
     Active Substance: FLUCONAZOLE
     Indication: ANTIFUNGAL PROPHYLAXIS
     Dates: end: 20130416
  9. THYMOGLOBULINE [Suspect]
     Active Substance: LAPINE T-LYMPHOCYTE IMMUNE GLOBULIN
     Indication: ACUTE GRAFT VERSUS HOST DISEASE
     Dosage: UNK
     Route: 042
     Dates: start: 20130403, end: 20130407
  10. NEOPAREN [Suspect]
     Active Substance: AMINO ACIDS\DEXTROSE\ELECTROLYTES NOS
     Indication: DECREASED APPETITE
     Route: 065
     Dates: start: 20130406, end: 20130415
  11. RITUXAN [Suspect]
     Active Substance: RITUXIMAB
     Indication: EPSTEIN-BARR VIRUS ASSOCIATED LYMPHOPROLIFERATIVE DISORDER
     Route: 065
     Dates: start: 20130417, end: 20130423
  12. MAGNESIUM SULFATE. [Concomitant]
     Active Substance: MAGNESIUM SULFATE
     Indication: HYPOMAGNESAEMIA
     Dates: start: 20130403, end: 20130405
  13. SOLITA-T NO.2 [Concomitant]
     Dates: start: 20130403, end: 20130425
  14. POTASSIUM CHLORIDE. [Concomitant]
     Active Substance: POTASSIUM CHLORIDE
     Indication: HYPOKALAEMIA
     Dates: start: 20130408, end: 20130425
  15. CEFEPIME [Concomitant]
     Active Substance: CEFEPIME\CEFEPIME HYDROCHLORIDE
     Indication: ANTIBIOTIC PROPHYLAXIS
     Dates: start: 20130416, end: 20130421
  16. SODIUM CHLORIDE. [Concomitant]
     Active Substance: SODIUM CHLORIDE
     Indication: DECREASED APPETITE
     Dates: start: 20130406, end: 20130415
  17. HEPARIN SODIUM. [Concomitant]
     Active Substance: HEPARIN SODIUM
     Indication: DECREASED APPETITE
     Dates: start: 20130406, end: 20130415
  18. CARBOHYDRATES NOS/SODIUM LACTATE/SODIUM CHLORIDE/POTASSIUM CHLORIDE [Concomitant]
     Indication: ACUTE MYELOID LEUKAEMIA
     Dates: start: 20130418, end: 20130422
  19. FUNGUARD [Concomitant]
     Active Substance: MICAFUNGIN SODIUM
     Indication: ANTIFUNGAL PROPHYLAXIS
     Dates: start: 20130416, end: 20130425
  20. FOSCAVIR [Concomitant]
     Active Substance: FOSCARNET SODIUM
     Indication: ANTIVIRAL PROPHYLAXIS
     Dates: start: 20130419, end: 20130425
  21. BACCIDAL [Concomitant]
     Active Substance: NORFLOXACIN
     Indication: ANTIBIOTIC PROPHYLAXIS
     Dates: end: 20130419
  22. CEFMETAZON [Suspect]
     Active Substance: CEFMETAZOLE SODIUM
     Indication: INFECTION PROPHYLAXIS
     Route: 065
     Dates: start: 20130403, end: 20130425
  23. SOL-MELCORT [Suspect]
     Active Substance: METHYLPREDNISOLONE SODIUM SUCCINATE
     Indication: PROPHYLAXIS AGAINST GRAFT VERSUS HOST DISEASE
     Route: 065
     Dates: start: 20130220, end: 20130425
  24. HEPARIN SODIUM. [Concomitant]
     Active Substance: HEPARIN SODIUM
     Indication: DECREASED APPETITE
     Dates: start: 20130403, end: 20130425
  25. MORPHINE HYDROCHLORIDE [Concomitant]
     Active Substance: MORPHINE HYDROCHLORIDE
     Indication: ACUTE MYELOID LEUKAEMIA
     Dates: start: 20130222, end: 20130425
  26. MEROPEN [Concomitant]
     Active Substance: MEROPENEM
     Indication: ANTIBIOTIC PROPHYLAXIS
     Dates: start: 20130421, end: 20130425
  27. SAXIZON [Concomitant]
     Active Substance: HYDROCORTISONE SODIUM SUCCINATE
     Indication: PROPHYLAXIS
     Dates: end: 20130421
  28. BAKTAR [Concomitant]
     Active Substance: SULFAMETHOXAZOLE\TRIMETHOPRIM
     Indication: ANTIFUNGAL PROPHYLAXIS
     Dates: end: 20130425
  29. SODIUM ALGINATE [Concomitant]
     Active Substance: SODIUM ALGINATE
     Indication: PROPHYLAXIS AGAINST GASTROINTESTINAL ULCER
     Dates: start: 20130420, end: 20130423
  30. POLYMYXIN B SULFATE. [Concomitant]
     Active Substance: POLYMYXIN B SULFATE
     Indication: ANTIBIOTIC PROPHYLAXIS
     Dates: end: 20130419
  31. GLUCOSE [Concomitant]
     Active Substance: DEXTROSE
     Indication: ACUTE MYELOID LEUKAEMIA
     Dates: start: 20130406, end: 20130425
  32. DENOSINE [Suspect]
     Active Substance: GANCICLOVIR
     Indication: ANTIVIRAL PROPHYLAXIS
     Route: 065
     Dates: start: 20130412, end: 20130415
  33. ANTHROBIN P [Concomitant]
     Active Substance: ANTITHROMBIN III HUMAN
     Indication: PROPHYLAXIS
     Dates: end: 20130425
  34. CALONAL [Concomitant]
     Active Substance: ACETAMINOPHEN
     Indication: ACUTE MYELOID LEUKAEMIA
     Dates: end: 20130425

REACTIONS (4)
  - Disseminated intravascular coagulation [Not Recovered/Not Resolved]
  - Epstein-Barr virus associated lymphoproliferative disorder [Fatal]
  - Hepatic function abnormal [Not Recovered/Not Resolved]
  - Bone marrow failure [Not Recovered/Not Resolved]

NARRATIVE: CASE EVENT DATE: 20130408
